FAERS Safety Report 9818576 (Version 1)
Quarter: 2014Q1

REPORT INFORMATION
  Report Type: Spontaneous
  Country: US (occurrence: None)
  Receive Date: 20140114
  Receipt Date: 20140114
  Transmission Date: 20141002
  Serious: Yes (Death, Hospitalization)
  Sender: FDA-Public Use
  Company Number: None

PATIENT
  Age: 67 Year
  Sex: Male
  Weight: 74.39 kg

DRUGS (1)
  1. GABAPENTIN [Suspect]
     Indication: DIABETIC NEUROPATHY
     Route: 048
     Dates: start: 20131111, end: 20131117

REACTIONS (6)
  - Toxicity to various agents [None]
  - Toxic encephalopathy [None]
  - Metabolic encephalopathy [None]
  - Respiratory failure [None]
  - Pneumonia aspiration [None]
  - Sepsis [None]
